FAERS Safety Report 12190205 (Version 1)
Quarter: 2016Q1

REPORT INFORMATION
  Report Type: Spontaneous
  Country: FR (occurrence: FR)
  Receive Date: 20160318
  Receipt Date: 20160318
  Transmission Date: 20160526
  Serious: Yes (Hospitalization)
  Sender: FDA-Public Use
  Company Number: FR-TEVA-644043ISR

PATIENT
  Age: 66 Year
  Sex: Male

DRUGS (6)
  1. TRAMADOL. [Suspect]
     Active Substance: TRAMADOL
     Route: 048
     Dates: start: 201512, end: 20160213
  2. VERSATIS [Suspect]
     Active Substance: LIDOCAINE
     Indication: PAIN
     Dosage: 1 DOSAGE FORMS DAILY;
     Route: 003
     Dates: start: 201509, end: 20160213
  3. OROCAL D3 [Suspect]
     Active Substance: CALCIUM CARBONATE\CHOLECALCIFEROL
     Indication: MINERAL SUPPLEMENTATION
     Route: 048
     Dates: start: 201601, end: 20160213
  4. IXPRIM [Suspect]
     Active Substance: ACETAMINOPHEN\TRAMADOL HYDROCHLORIDE
     Indication: MUSCULOSKELETAL PAIN
     Route: 048
     Dates: start: 201509, end: 201512
  5. ISOPTINE 120 MG [Concomitant]
  6. CORTANCYL 20 MG [Concomitant]
     Active Substance: PREDNISONE

REACTIONS (6)
  - Mucosal erosion [Recovering/Resolving]
  - Rash erythematous [Recovering/Resolving]
  - Eyelid oedema [Unknown]
  - Thrombocytopenic purpura [Recovering/Resolving]
  - Stomatitis [Unknown]
  - Skin exfoliation [Recovering/Resolving]

NARRATIVE: CASE EVENT DATE: 20160211
